FAERS Safety Report 5108777-7 (Version None)
Quarter: 2006Q3

REPORT INFORMATION
  Report Type: 
  Country: None (occurrence: None)
  Receive Date: 20060918
  Receipt Date: 20060906
  Transmission Date: 20061208
  Serious: Yes (Hospitalization, Other)
  Sender: FDA-Public Use
  Company Number: 2006108568

PATIENT
  Sex: Female
  Weight: 57.1532 kg

DRUGS (6)
  1. LIPITOR [Suspect]
     Indication: BLOOD CHOLESTEROL INCREASED
  2. LYRICA [Suspect]
     Indication: NEUROPATHY PERIPHERAL
     Dosage: 25 MG (25 MG, 1 IN 1 D),
  3. GLUCOTROL [Concomitant]
  4. SYNTHROID [Concomitant]
  5. LEXAPRO [Concomitant]
  6. VITAMINS (VITAMINS) [Concomitant]

REACTIONS (10)
  - BLOOD CHOLESTEROL INCREASED [None]
  - DIABETIC NEUROPATHY [None]
  - DIZZINESS [None]
  - FALL [None]
  - FEAR OF FALLING [None]
  - LIMB INJURY [None]
  - NEURALGIA [None]
  - PAIN [None]
  - PNEUMONIA [None]
  - RIB FRACTURE [None]
